FAERS Safety Report 7572884-X (Version None)
Quarter: 2011Q2

REPORT INFORMATION
  Report Type: 
  Country: None (occurrence: None)
  Receive Date: 20110627
  Receipt Date: 20110614
  Transmission Date: 20111010
  Serious: Yes (Other)
  Sender: FDA-Public Use
  Company Number: US-ELI_LILLY_AND_COMPANY-US201106005518

PATIENT
  Age: 53 Year
  Sex: Female

DRUGS (3)
  1. SINGULAIR [Concomitant]
     Dosage: UNK
  2. CYMBALTA [Suspect]
     Indication: ANXIETY DISORDER
     Dosage: 40 MG, QD
     Dates: start: 20100601, end: 20100601
  3. CYMBALTA [Suspect]
     Dosage: 40 MG, QD
     Dates: start: 20110610

REACTIONS (2)
  - ABDOMINAL PAIN UPPER [None]
  - OBESITY SURGERY [None]
